FAERS Safety Report 23531031 (Version 2)
Quarter: 2024Q1

REPORT INFORMATION
  Report Type: Spontaneous
  Country: DE (occurrence: DE)
  Receive Date: 20240216
  Receipt Date: 20240229
  Transmission Date: 20240409
  Serious: Yes (Hospitalization, Other)
  Sender: FDA-Public Use
  Company Number: DE-SUN PHARMACEUTICAL INDUSTRIES LTD-2024RR-431423

PATIENT
  Age: 36 Year
  Sex: Female

DRUGS (4)
  1. GANIRELIX [Suspect]
     Active Substance: GANIRELIX
     Indication: Assisted reproductive technology
     Dosage: UNK
     Route: 065
  2. FOLLITROPIN ALFA [Suspect]
     Active Substance: FOLLITROPIN ALFA
     Indication: Assisted reproductive technology
     Dosage: UNK
     Route: 065
  3. PROGESTERONE [Suspect]
     Active Substance: PROGESTERONE
     Indication: Assisted reproductive technology
     Dosage: UNK
     Route: 065
  4. CHORIOGONADOTROPIN ALFA [Suspect]
     Active Substance: CHORIOGONADOTROPIN ALFA
     Indication: Assisted reproductive technology
     Dosage: UNK
     Route: 065

REACTIONS (2)
  - Bladder tamponade [Recovered/Resolved]
  - Haematuria [Recovered/Resolved]

NARRATIVE: CASE EVENT DATE: 20230927
